FAERS Safety Report 24789687 (Version 2)
Quarter: 2025Q1

REPORT INFORMATION
  Report Type: Report from Study
  Country: JP (occurrence: JP)
  Receive Date: 20241230
  Receipt Date: 20250207
  Transmission Date: 20250409
  Serious: Yes (Death, Other)
  Sender: PFIZER
  Company Number: JP-PFIZER INC-202400333609

PATIENT

DRUGS (2)
  1. AXITINIB [Suspect]
     Active Substance: AXITINIB
     Indication: Clear cell renal cell carcinoma
  2. AVELUMAB [Suspect]
     Active Substance: AVELUMAB
     Indication: Clear cell renal cell carcinoma

REACTIONS (1)
  - Guillain-Barre syndrome [Fatal]
